FAERS Safety Report 21186232 (Version 2)
Quarter: 2022Q3

REPORT INFORMATION
  Report Type: Report from Study
  Country: CN (occurrence: None)
  Receive Date: 20220808
  Receipt Date: 20220914
  Transmission Date: 20221027
  Serious: Yes (Hospitalization)
  Sender: FDA-Public Use
  Company Number: 2022A271994

PATIENT
  Age: 26600 Day
  Sex: Male

DRUGS (25)
  1. DURVALUMAB [Suspect]
     Active Substance: DURVALUMAB
     Indication: Non-small cell lung cancer
     Route: 042
     Dates: start: 20220325, end: 20220325
  2. DURVALUMAB [Suspect]
     Active Substance: DURVALUMAB
     Indication: Non-small cell lung cancer
     Route: 042
     Dates: start: 20220509, end: 20220509
  3. DURVALUMAB [Suspect]
     Active Substance: DURVALUMAB
     Indication: Non-small cell lung cancer
     Route: 042
     Dates: start: 20220610, end: 20220610
  4. DURVALUMAB [Suspect]
     Active Substance: DURVALUMAB
     Indication: Non-small cell lung cancer
     Route: 042
     Dates: start: 20220715, end: 20220715
  5. CARBOPLATIN [Suspect]
     Active Substance: CARBOPLATIN
     Indication: Non-small cell lung cancer
     Dates: start: 20220325, end: 20220325
  6. CARBOPLATIN [Suspect]
     Active Substance: CARBOPLATIN
     Indication: Non-small cell lung cancer
     Dates: start: 20220610, end: 20220610
  7. CARBOPLATIN [Suspect]
     Active Substance: CARBOPLATIN
     Indication: Non-small cell lung cancer
     Dates: start: 20220509, end: 20220509
  8. CARBOPLATIN [Suspect]
     Active Substance: CARBOPLATIN
     Indication: Non-small cell lung cancer
     Dates: start: 20220715, end: 20220715
  9. GEMCITABINE [Suspect]
     Active Substance: GEMCITABINE
     Indication: Non-small cell lung cancer
     Route: 042
     Dates: start: 20220325, end: 20220325
  10. GEMCITABINE [Suspect]
     Active Substance: GEMCITABINE
     Indication: Non-small cell lung cancer
     Route: 042
     Dates: start: 20220401, end: 20220401
  11. GEMCITABINE [Suspect]
     Active Substance: GEMCITABINE
     Indication: Non-small cell lung cancer
     Route: 042
     Dates: start: 20220509, end: 20220509
  12. GEMCITABINE [Suspect]
     Active Substance: GEMCITABINE
     Indication: Non-small cell lung cancer
     Route: 042
     Dates: start: 20220516, end: 20220516
  13. GEMCITABINE [Suspect]
     Active Substance: GEMCITABINE
     Indication: Non-small cell lung cancer
     Route: 042
     Dates: start: 20220610, end: 20220610
  14. GEMCITABINE [Suspect]
     Active Substance: GEMCITABINE
     Indication: Non-small cell lung cancer
     Route: 042
     Dates: start: 20220620, end: 20220620
  15. GEMCITABINE [Suspect]
     Active Substance: GEMCITABINE
     Indication: Non-small cell lung cancer
     Route: 042
     Dates: start: 20220715, end: 20220715
  16. GEMCITABINE [Suspect]
     Active Substance: GEMCITABINE
     Indication: Non-small cell lung cancer
     Route: 042
     Dates: start: 20220722, end: 20220722
  17. ENTERAL NUTRITIONAL POWDER [Concomitant]
     Indication: Nutritional supplementation
     Dosage: RIGHT AMOUNT DAILY
     Route: 048
     Dates: start: 20220513
  18. BENZYLPENICILLIN SODIUM FOR INJECTION [Concomitant]
     Indication: Infection prophylaxis
     Route: 062
     Dates: start: 20220730, end: 20220730
  19. HUMAN GRANULOCYTE STIMULATING FACTOR INJECTION [Concomitant]
     Indication: White blood cell count decreased
     Dosage: 150UG/INHAL DAILY
     Route: 058
     Dates: start: 20220727, end: 20220730
  20. HUMAN GRANULOCYTE STIMULATING FACTOR INJECTION [Concomitant]
     Indication: White blood cell count decreased
     Dosage: 150UG/INHAL DAILY
     Route: 058
     Dates: start: 20220727, end: 20220730
  21. PIPERACILLIN TAZOBACTAM SODIUM [Concomitant]
     Indication: Nutritional supplementation
     Dosage: RIGHT AMOUNT DAILY
     Dates: start: 20220616
  22. PENICILLIN G SODIUM [Concomitant]
     Active Substance: PENICILLIN G SODIUM
     Indication: Nutritional supplementation
     Dosage: RIGHT AMOUNT DAILY
     Dates: start: 20220616
  23. HUMAN GRANULOCYTE-STIMULATING FACTOR INJECTION [Concomitant]
     Indication: Nutritional supplementation
     Dosage: RIGHT AMOUNT DAILY
     Dates: start: 20220616
  24. RANITIDINE [Concomitant]
     Active Substance: RANITIDINE
     Indication: Nutritional supplementation
     Dosage: RIGHT AMOUNT DAILY
     Dates: start: 20220616
  25. PALONOSETRON [Concomitant]
     Active Substance: PALONOSETRON
     Indication: Nutritional supplementation
     Dosage: RIGHT AMOUNT DAILY
     Dates: start: 20220616

REACTIONS (1)
  - Myelosuppression [Recovered/Resolved]

NARRATIVE: CASE EVENT DATE: 20220730
